FAERS Safety Report 9068961 (Version 1)
Quarter: 2013Q1

REPORT INFORMATION
  Report Type: Spontaneous
  Country: US (occurrence: None)
  Receive Date: 20130213
  Receipt Date: 20130213
  Transmission Date: 20140127
  Serious: Yes (Hospitalization)
  Sender: FDA-Public Use
  Company Number: None

PATIENT
  Age: 93 Year
  Sex: Male
  Weight: 83.5 kg

DRUGS (1)
  1. RANOLAZINE [Suspect]
     Indication: ANGINA PECTORIS
     Route: 048
     Dates: start: 20120914, end: 20120102

REACTIONS (7)
  - Cough [None]
  - Dry mouth [None]
  - Feeling cold [None]
  - Dyspnoea [None]
  - Asthenia [None]
  - Hyperglycaemia [None]
  - Electrocardiogram QT prolonged [None]
